FAERS Safety Report 20791642 (Version 5)
Quarter: 2022Q2

REPORT INFORMATION
  Report Type: Report from Study
  Country: FR (occurrence: FR)
  Receive Date: 20220505
  Receipt Date: 20220617
  Transmission Date: 20220721
  Serious: Yes (Hospitalization)
  Sender: FDA-Public Use
  Company Number: FR-JNJFOC-20220500132

PATIENT
  Age: 76 Year
  Sex: Female
  Weight: 46 kg

DRUGS (9)
  1. AMIVANTAMAB [Suspect]
     Active Substance: AMIVANTAMAB
     Indication: Non-small cell lung cancer
     Route: 042
     Dates: start: 20220214, end: 20220411
  2. COVID-19 VACCINE [Concomitant]
     Indication: Prophylaxis
     Dosage: UNIT DOSE 1 OTHER
     Route: 030
     Dates: start: 20220310, end: 20220310
  3. COVID-19 VACCINE [Concomitant]
     Dosage: UNIT DOSE 1 OTHER
     Route: 030
     Dates: start: 20220407, end: 20220407
  4. NEODECADRON [Concomitant]
     Active Substance: DEXAMETHASONE SODIUM PHOSPHATE\NEOMYCIN SULFATE
     Indication: Ulcerative keratitis
     Route: 047
     Dates: start: 20220405, end: 20220427
  5. NEODECADRON [Concomitant]
     Active Substance: DEXAMETHASONE SODIUM PHOSPHATE\NEOMYCIN SULFATE
     Indication: Conjunctivitis
  6. DESLORATADINE [Concomitant]
     Active Substance: DESLORATADINE
     Indication: Prophylaxis
     Route: 048
  7. CALCIUM\CHOLECALCIFEROL [Concomitant]
     Active Substance: CALCIUM\CHOLECALCIFEROL
     Indication: Prophylaxis
     Dosage: 500/440
     Route: 048
  8. DOXYCYCLINE [Concomitant]
     Active Substance: DOXYCYCLINE
     Indication: Prophylaxis
     Route: 048
     Dates: start: 20220214
  9. IBUPROFEN [Concomitant]
     Active Substance: IBUPROFEN
     Indication: Bone pain
     Route: 048
     Dates: start: 20220314, end: 20220411

REACTIONS (2)
  - Ulcerative keratitis [Not Recovered/Not Resolved]
  - Pneumonia [Recovered/Resolved]

NARRATIVE: CASE EVENT DATE: 20220425
